FAERS Safety Report 9734956 (Version 1)
Quarter: 2013Q4

REPORT INFORMATION
  Report Type: Spontaneous
  Country: US (occurrence: US)
  Receive Date: 20131206
  Receipt Date: 20131206
  Transmission Date: 20140711
  Serious: No
  Sender: FDA-Public Use
  Company Number: US-PFIZER INC-2013348165

PATIENT
  Sex: Male

DRUGS (3)
  1. LYRICA [Suspect]
     Dosage: UNK
  2. DEXILANT [Suspect]
     Dosage: 300 MG, 2X/DAY
  3. DEXILANT [Suspect]
     Dosage: 300 MG, 1X/DAY

REACTIONS (4)
  - Therapeutic response unexpected [Unknown]
  - Constipation [Unknown]
  - Dry mouth [Unknown]
  - Post herpetic neuralgia [Unknown]
